FAERS Safety Report 7430943-6 (Version None)
Quarter: 2011Q2

REPORT INFORMATION
  Report Type: 
  Country: None (occurrence: None)
  Receive Date: 20110419
  Receipt Date: 20110419
  Transmission Date: 20111010
  Serious: Yes (Other)
  Sender: FDA-Public Use
  Company Number: None

PATIENT
  Age: 38 Year
  Sex: Female
  Weight: 155.1 kg

DRUGS (7)
  1. PREDNISONE [Concomitant]
  2. METOPROLOL SUCCINATE EXTENDED RELEASE [Concomitant]
  3. SALAGEN [Concomitant]
  4. REMICADE [Suspect]
     Indication: RHEUMATOID ARTHRITIS
     Dosage: 300 MG IV
     Route: 042
     Dates: start: 20070101
  5. CITALOPRAM [Concomitant]
  6. METHOTREXATE [Concomitant]
  7. FOLINIC ACID [Concomitant]

REACTIONS (3)
  - NASAL CONGESTION [None]
  - RHINORRHOEA [None]
  - SNEEZING [None]
